FAERS Safety Report 21312892 (Version 1)
Quarter: 2022Q3

REPORT INFORMATION
  Report Type: Spontaneous
  Country: US (occurrence: None)
  Receive Date: 20220909
  Receipt Date: 20220909
  Transmission Date: 20221027
  Serious: Yes (unspecified)
  Sender: FDA-Public Use
  Company Number: None

PATIENT
  Sex: 0

DRUGS (2)
  1. DURVALUMAB [Suspect]
     Active Substance: DURVALUMAB
  2. CISPLATIN [Suspect]
     Active Substance: CISPLATIN

REACTIONS (3)
  - Pruritus [None]
  - Pruritus [None]
  - Erythema [None]

NARRATIVE: CASE EVENT DATE: 20220722
